FAERS Safety Report 8381881-6 (Version None)
Quarter: 2012Q2

REPORT INFORMATION
  Report Type: 
  Country: None (occurrence: None)
  Receive Date: 20120523
  Receipt Date: 20120523
  Transmission Date: 20120825
  Serious: Yes (Death, Life-Threatening, Hospitalization, Disabling, Other)
  Sender: FDA-Public Use
  Company Number: None

PATIENT
  Sex: Female
  Weight: 86.1834 kg

DRUGS (3)
  1. PEGASYS [Concomitant]
  2. RIBAVIRIN [Concomitant]
  3. INCIVEK [Suspect]
     Indication: HEPATITIS C
     Dosage: 375MG X 2 3 TIMES/DAY MOUTH;  750 MG 3 TIMES A DAY MOUTH
     Route: 048
     Dates: start: 20110627, end: 20110808

REACTIONS (7)
  - PAIN [None]
  - POSTMENOPAUSAL HAEMORRHAGE [None]
  - DIARRHOEA [None]
  - MUSCLE SPASMS [None]
  - ANAEMIA [None]
  - ASTHENIA [None]
  - FLUID OVERLOAD [None]
